FAERS Safety Report 16492178 (Version 1)
Quarter: 2019Q2

REPORT INFORMATION
  Report Type: Spontaneous
  Country: US (occurrence: US)
  Receive Date: 20190628
  Receipt Date: 20190628
  Transmission Date: 20190711
  Serious: Yes (Other)
  Sender: FDA-Public Use
  Company Number: US-TEVA-2019-US-1067238

PATIENT
  Sex: Female

DRUGS (1)
  1. BUPROPION HYDROCHLORIDE EXTENDED RELEASE TABLET [Suspect]
     Active Substance: BUPROPION HYDROCHLORIDE
     Dosage: DOSE STRENGTH: 300
     Route: 065
     Dates: start: 20190616

REACTIONS (7)
  - Depression [Unknown]
  - Anxiety [Unknown]
  - Intrusive thoughts [Unknown]
  - Headache [Unknown]
  - Dry mouth [Unknown]
  - Nausea [Unknown]
  - Product substitution issue [Unknown]

NARRATIVE: CASE EVENT DATE: 20190616
